FAERS Safety Report 6563014-1 (Version None)
Quarter: 2010Q1

REPORT INFORMATION
  Report Type: 
  Country: None (occurrence: None)
  Receive Date: 20100130
  Receipt Date: 20091130
  Transmission Date: 20100710
  Serious: No
  Sender: FDA-Public Use
  Company Number: US-ABBOTT-09P-163-0611647-00

PATIENT
  Sex: Female
  Weight: 56.75 kg

DRUGS (6)
  1. HUMIRA [Suspect]
     Indication: CROHN'S DISEASE
     Route: 058
     Dates: start: 20091021
  2. PREDNISONE [Concomitant]
     Indication: CROHN'S DISEASE
     Dates: start: 20090701
  3. AZATHIOPRINE [Concomitant]
     Indication: CROHN'S DISEASE
     Dates: start: 20090701
  4. MAXAIR [Concomitant]
     Indication: MYCOTIC ALLERGY
     Route: 055
  5. MAXAIR [Concomitant]
     Indication: ALLERGY TO ANIMAL
  6. MINOCYCLINE HCL [Concomitant]
     Indication: ACNE

REACTIONS (3)
  - INJECTION SITE HAEMATOMA [None]
  - INJECTION SITE HAEMORRHAGE [None]
  - INJECTION SITE PAIN [None]
